FAERS Safety Report 5845395-7 (Version None)
Quarter: 2008Q3

REPORT INFORMATION
  Report Type: 
  Country: None (occurrence: None)
  Receive Date: 20080814
  Receipt Date: 20080804
  Transmission Date: 20090109
  Serious: Yes (Hospitalization)
  Sender: FDA-Public Use
  Company Number: US-MERCK-0808USA00577

PATIENT
  Age: 83 Year
  Sex: Male

DRUGS (2)
  1. ZETIA [Suspect]
     Indication: BLOOD CHOLESTEROL
     Route: 048
     Dates: start: 20070101, end: 20080725
  2. FLOMAX [Concomitant]
     Indication: DYSURIA
     Route: 065

REACTIONS (2)
  - HEADACHE [None]
  - MUSCULOSKELETAL DISCOMFORT [None]
